FAERS Safety Report 14267525 (Version 1)
Quarter: 2017Q4

REPORT INFORMATION
  Report Type: Spontaneous
  Country: US (occurrence: US)
  Receive Date: 20171209
  Receipt Date: 20171209
  Transmission Date: 20180321
  Serious: No
  Sender: FDA-Public Use
  Company Number: None

PATIENT
  Age: 42 Year
  Sex: Female
  Weight: 49.5 kg

DRUGS (3)
  1. HYDROQUINONE. [Concomitant]
     Active Substance: HYDROQUINONE
  2. MULTI VITAMIN [Concomitant]
     Active Substance: VITAMINS
  3. XIIDRA [Suspect]
     Active Substance: LIFITEGRAST
     Indication: DRY EYE
     Route: 047
     Dates: start: 20171119, end: 20171125

REACTIONS (4)
  - Lacrimation increased [None]
  - Contusion [None]
  - Eye pain [None]
  - Dysgeusia [None]

NARRATIVE: CASE EVENT DATE: 20171123
